FAERS Safety Report 23751885 (Version 1)
Quarter: 2024Q2

REPORT INFORMATION
  Report Type: Spontaneous
  Country: US (occurrence: None)
  Receive Date: 20240417
  Receipt Date: 20240417
  Transmission Date: 20240716
  Serious: Yes (Life-Threatening, Hospitalization, Disabling)
  Sender: FDA-Public Use
  Company Number: None

PATIENT
  Age: 63 Year
  Sex: Female
  Weight: 67.5 kg

DRUGS (9)
  1. JARDIANCE [Suspect]
     Active Substance: EMPAGLIFLOZIN
     Indication: Type 2 diabetes mellitus
     Dosage: OTHER QUANTITY : 1 TABLET(S);?OTHER FREQUENCY : OTHER;?
     Route: 048
     Dates: start: 20200401, end: 20231129
  2. METOPROLOL TARTRATE [Concomitant]
     Active Substance: METOPROLOL TARTRATE
  3. JANUVIA [Concomitant]
     Active Substance: SITAGLIPTIN PHOSPHATE
  4. TIMOLOL MALEATE [Concomitant]
     Active Substance: TIMOLOL MALEATE
  5. LEVOTHYROXINE [Concomitant]
     Active Substance: LEVOTHYROXINE\LEVOTHYROXINE SODIUM
  6. LATANOPROST [Concomitant]
     Active Substance: LATANOPROST
  7. ASPIRINE 80 [Concomitant]
  8. THERA MULTIVITAMINES [Concomitant]
  9. FERROUS SULFATE [Concomitant]
     Active Substance: FERROUS SULFATE

REACTIONS (16)
  - Vomiting [None]
  - Diarrhoea [None]
  - Confusional state [None]
  - Dizziness [None]
  - Chest pain [None]
  - Fall [None]
  - Myocardial infarction [None]
  - Diabetic ketoacidosis [None]
  - Hypokalaemia [None]
  - Acute kidney injury [None]
  - Asthenia [None]
  - Encephalopathy [None]
  - Blood pressure increased [None]
  - Loss of consciousness [None]
  - Impaired driving ability [None]
  - Impaired work ability [None]

NARRATIVE: CASE EVENT DATE: 20231130
